FAERS Safety Report 25281872 (Version 2)
Quarter: 2025Q2

REPORT INFORMATION
  Report Type: Spontaneous
  Country: US (occurrence: US)
  Receive Date: 20250508
  Receipt Date: 20250514
  Transmission Date: 20250717
  Serious: No
  Sender: LUPIN
  Company Number: US-LUPIN PHARMACEUTICALS INC.-2025-03736

PATIENT
  Age: 61 Year
  Weight: 74.84 kg

DRUGS (1)
  1. ALBUTEROL SULFATE [Suspect]
     Active Substance: ALBUTEROL SULFATE
     Indication: Viral infection

REACTIONS (8)
  - Dyspnoea [Unknown]
  - Wheezing [Unknown]
  - Nasal congestion [Unknown]
  - Drug dose omission by device [Unknown]
  - Wrong technique in product usage process [Unknown]
  - Incorrect dose administered by device [Unknown]
  - Product use in unapproved indication [Unknown]
  - Device malfunction [Unknown]
